FAERS Safety Report 9503928 (Version 1)
Quarter: 2013Q3

REPORT INFORMATION
  Report Type: Spontaneous
  Country: US (occurrence: None)
  Receive Date: 20130905
  Receipt Date: 20130905
  Transmission Date: 20140515
  Serious: No
  Sender: FDA-Public Use
  Company Number: None

PATIENT
  Age: 63 Year
  Sex: Female
  Weight: 78.93 kg

DRUGS (1)
  1. PRAZOSIN [Suspect]
     Indication: HYPERTENSION
     Dosage: 1 CAPSULE  ONCE DAILY  TAKEN BY MOUTH
     Route: 048
     Dates: start: 20130824, end: 20130824

REACTIONS (5)
  - Tachycardia [None]
  - Palpitations [None]
  - Hyperhidrosis [None]
  - Back pain [None]
  - Dizziness [None]
